FAERS Safety Report 10375676 (Version 2)
Quarter: 2014Q3

REPORT INFORMATION
  Report Type: Spontaneous
  Country: US (occurrence: US)
  Receive Date: 20140811
  Receipt Date: 20140811
  Transmission Date: 20150326
  Serious: No
  Sender: FDA-Public Use
  Company Number: US-ENDO PHARMACEUTICALS INC.-LISI20140023

PATIENT
  Age: 56 Year
  Sex: Female

DRUGS (2)
  1. LISINOPRIL TABLETS 10MG [Suspect]
     Active Substance: LISINOPRIL
     Route: 048
     Dates: start: 20140402
  2. LISINOPRIL TABLETS 10MG [Suspect]
     Active Substance: LISINOPRIL
     Indication: HYPERTENSION
     Route: 048
     Dates: start: 20140313, end: 201403

REACTIONS (2)
  - Hallucination, visual [Unknown]
  - Drug ineffective [Not Recovered/Not Resolved]

NARRATIVE: CASE EVENT DATE: 20140313
